FAERS Safety Report 6739020-0 (Version None)
Quarter: 2010Q2

REPORT INFORMATION
  Report Type: 
  Country: None (occurrence: None)
  Receive Date: 20100524
  Receipt Date: 20100524
  Transmission Date: 20101027
  Serious: Yes (Life-Threatening)
  Sender: FDA-Public Use
  Company Number: None

PATIENT
  Age: 42 Year
  Sex: Female

DRUGS (1)
  1. GABAPENTIN [Suspect]
     Indication: DEPRESSION
     Dosage: 300MG 3XDAILY PO
     Route: 048
     Dates: start: 20100430, end: 20100521

REACTIONS (5)
  - AGITATION [None]
  - ANGER [None]
  - INSOMNIA [None]
  - SUICIDAL IDEATION [None]
  - URTICARIA [None]
